FAERS Safety Report 19661318 (Version 1)
Quarter: 2021Q3

REPORT INFORMATION
  Report Type: Spontaneous
  Country: HR (occurrence: HR)
  Receive Date: 20210805
  Receipt Date: 20210805
  Transmission Date: 20211014
  Serious: Yes (Other)
  Sender: FDA-Public Use
  Company Number: HR-INCYTE CORPORATION-2021IN005164

PATIENT

DRUGS (4)
  1. JAKAVI [Suspect]
     Active Substance: RUXOLITINIB
     Indication: PRIMARY MYELOFIBROSIS
     Dosage: 40 MG (2X20 MG)
     Route: 065
     Dates: start: 201703
  2. JAKAVI [Suspect]
     Active Substance: RUXOLITINIB
     Dosage: 10 MG (2X5 MG)
     Route: 065
  3. JAKAVI [Suspect]
     Active Substance: RUXOLITINIB
     Dosage: 20 MG (2X10 MG)
     Route: 065
  4. AZACITIDINE. [Concomitant]
     Active Substance: AZACITIDINE
     Indication: PRODUCT USED FOR UNKNOWN INDICATION
     Dosage: UNK
     Route: 065

REACTIONS (11)
  - Ascites [Unknown]
  - Spider naevus [Unknown]
  - Haemorrhage [Unknown]
  - Thrombocytopenia [Unknown]
  - Chromaturia [Unknown]
  - Myelofibrosis [Unknown]
  - Epistaxis [Unknown]
  - Fatigue [Unknown]
  - Jaundice [Unknown]
  - Oedema peripheral [Unknown]
  - Pruritus [Unknown]

NARRATIVE: CASE EVENT DATE: 202101
